FAERS Safety Report 7043228-7 (Version None)
Quarter: 2010Q3

REPORT INFORMATION
  Report Type: 
  Country: None (occurrence: None)
  Receive Date: 20100929
  Receipt Date: 20100607
  Transmission Date: 20110219
  Serious: No
  Sender: FDA-Public Use
  Company Number: US-WYE-H15550710

PATIENT
  Age: 76 Year
  Sex: Female
  Weight: 93.07 kg

DRUGS (13)
  1. PRISTIQ [Suspect]
     Indication: DEPRESSION
     Dosage: 50 MG 1X PER 1 DAY; 50 MG 1X PER 2 DAY; 50 MG 1X PER 3 DAY; 50 MG 1X PER 4 DAY
     Dates: start: 20100601, end: 20100601
  2. PRISTIQ [Suspect]
     Indication: DEPRESSION
     Dosage: 50 MG 1X PER 1 DAY; 50 MG 1X PER 2 DAY; 50 MG 1X PER 3 DAY; 50 MG 1X PER 4 DAY
     Dates: start: 20100601, end: 20100601
  3. PRISTIQ [Suspect]
     Indication: DEPRESSION
     Dosage: 50 MG 1X PER 1 DAY; 50 MG 1X PER 2 DAY; 50 MG 1X PER 3 DAY; 50 MG 1X PER 4 DAY
     Dates: start: 20100524
  4. PRISTIQ [Suspect]
     Indication: DEPRESSION
     Dosage: 50 MG 1X PER 1 DAY; 50 MG 1X PER 2 DAY; 50 MG 1X PER 3 DAY; 50 MG 1X PER 4 DAY
     Dates: start: 20100607
  5. ZOLOFT [Suspect]
     Indication: DEPRESSION
     Dosage: ^HIGH DOSE^; STARTED WEANING OFF UNTIL 25 MG DAILY^
  6. NEURONTIN [Concomitant]
  7. CELEBREX [Concomitant]
  8. PRANDIN [Concomitant]
  9. BENICAR [Concomitant]
  10. ELAVIL [Concomitant]
  11. TYLENOL ARTHRITIS PAIN (ACETAMINOPHEN) [Concomitant]
  12. CALCIUM WITH VITAMIN D (CALCIUM PHOSPHATE/CALCIUM SODIUM LACTATE/ERGOC [Concomitant]
  13. PROTONIX [Concomitant]

REACTIONS (4)
  - AGITATION [None]
  - FATIGUE [None]
  - IRRITABILITY [None]
  - MOOD ALTERED [None]
